FAERS Safety Report 6843772-9 (Version None)
Quarter: 2010Q3

REPORT INFORMATION
  Report Type: 
  Country: None (occurrence: None)
  Receive Date: 20100714
  Receipt Date: 20100714
  Transmission Date: 20110219
  Serious: No
  Sender: FDA-Public Use
  Company Number: None

PATIENT

DRUGS (13)
  1. DEFEROXAMINE 1000 MG HOSPIRA [Suspect]
     Indication: HAEMOSIDEROSIS
     Dosage: 1000 MG DAILY IM
     Route: 030
     Dates: start: 20081126
  2. TOPAMAX [Concomitant]
  3. VICODIN ES [Concomitant]
  4. PROMETHAZINE [Concomitant]
  5. TOPAMAX [Concomitant]
  6. PRILOSEC [Concomitant]
  7. COUMADIN [Concomitant]
  8. DEFEROXAMINE RECON SOLN DEFEROXAMINE [Concomitant]
  9. RANITIDINE HCL [Concomitant]
  10. ZOLOFT [Concomitant]
  11. ASPIRIN [Concomitant]
  12. HYDREA [Concomitant]
  13. RESTORIL TAMAZEPAM [Concomitant]

REACTIONS (2)
  - NO THERAPEUTIC RESPONSE [None]
  - PRODUCT SUBSTITUTION ISSUE [None]
